FAERS Safety Report 24417944 (Version 1)
Quarter: 2024Q4

REPORT INFORMATION
  Report Type: Spontaneous
  Country: CA (occurrence: CA)
  Receive Date: 20241009
  Receipt Date: 20241009
  Transmission Date: 20250114
  Serious: Yes (Death, Life-Threatening, Hospitalization, Disabling, Other)
  Sender: ANI
  Company Number: CA-ANIPHARMA-2024-CA-004255

PATIENT
  Age: 43 Year
  Sex: Female

DRUGS (10)
  1. CANDESARTAN CILEXETIL [Suspect]
     Active Substance: CANDESARTAN CILEXETIL
     Indication: Migraine
     Route: 048
  2. ACETAMINOPHEN [Suspect]
     Active Substance: ACETAMINOPHEN
  3. PANTOPRAZOLE SODIUM [Suspect]
     Active Substance: PANTOPRAZOLE SODIUM
  4. CALCIUM CARBONATE [Suspect]
     Active Substance: CALCIUM CARBONATE
  5. METHOTREXATE [Suspect]
     Active Substance: METHOTREXATE
     Dosage: 15 MILLIGRAM, QD; 20 MILLIGRAM, 1/WEEK; 25 MILLIGRAM; 1 DOSAGE FORM; 1 MILLIGRAM, QD
     Route: 048
  6. ASACOL [Suspect]
     Active Substance: MESALAMINE
  7. CALCIUM [Suspect]
     Active Substance: CALCIUM
  8. RITUXIMAB [Suspect]
     Active Substance: RITUXIMAB
     Route: 050
  9. RAMIPRIL [Suspect]
     Active Substance: RAMIPRIL
  10. DEXAMETHASONE [Suspect]
     Active Substance: DEXAMETHASONE

REACTIONS (43)
  - Blepharospasm [Fatal]
  - Bone erosion [Fatal]
  - Breast cancer stage III [Fatal]
  - Crohn^s disease [Fatal]
  - Delirium [Fatal]
  - Dislocation of vertebra [Fatal]
  - Epilepsy [Fatal]
  - Grip strength decreased [Fatal]
  - Hepatic cirrhosis [Fatal]
  - Laryngitis [Fatal]
  - Lower respiratory tract infection [Fatal]
  - Exostosis [Fatal]
  - Lung disorder [Fatal]
  - Muscular weakness [Fatal]
  - Night sweats [Fatal]
  - Paraesthesia [Fatal]
  - Red blood cell sedimentation rate increased [Fatal]
  - Rheumatic fever [Fatal]
  - Joint range of motion decreased [Fatal]
  - Wheezing [Fatal]
  - Drug hypersensitivity [Fatal]
  - Respiratory disorder [Fatal]
  - Lupus vulgaris [Fatal]
  - X-ray abnormal [Fatal]
  - Bursitis [Fatal]
  - Obesity [Fatal]
  - Abdominal pain upper [Fatal]
  - Muscle spasms [Fatal]
  - Dyspnoea [Fatal]
  - Insomnia [Fatal]
  - Discomfort [Fatal]
  - Depression [Fatal]
  - Peripheral venous disease [Fatal]
  - Taste disorder [Fatal]
  - Weight fluctuation [Fatal]
  - Dry mouth [Fatal]
  - Asthenia [Fatal]
  - Product use in unapproved indication [Unknown]
  - Drug ineffective for unapproved indication [Unknown]
  - Wound infection [Fatal]
  - Live birth [Fatal]
  - Amnesia [Fatal]
  - Anxiety [Fatal]
